FAERS Safety Report 19169274 (Version 3)
Quarter: 2022Q4

REPORT INFORMATION
  Report Type: Spontaneous
  Country: CN (occurrence: CN)
  Receive Date: 20210422
  Receipt Date: 20221216
  Transmission Date: 20230113
  Serious: Yes (Hospitalization, Other)
  Sender: FDA-Public Use
  Company Number: CN-MLMSERVICE-20210208-2710056-1

PATIENT
  Age: 81 Year
  Sex: Male

DRUGS (4)
  1. AMLODIPINE BESYLATE [Interacting]
     Active Substance: AMLODIPINE BESYLATE
     Indication: Hypertension
     Dosage: 10 MG, 1X/DAY
  2. ROSUVASTATIN [Interacting]
     Active Substance: ROSUVASTATIN
     Indication: Hyperlipidaemia
     Dosage: 10 MG, 1X/DAY
  3. CLOPIDOGREL [Interacting]
     Active Substance: CLOPIDOGREL BISULFATE
     Indication: Coronary artery disease
     Dosage: 75 MG, 1X/DAY
  4. METOPROLOL [Concomitant]
     Active Substance: METOPROLOL
     Indication: Hypertension
     Dosage: 47.5 MG, 1X/DAY

REACTIONS (3)
  - Drug-disease interaction [Recovered/Resolved]
  - Drug interaction [Recovered/Resolved]
  - Rhabdomyolysis [Recovered/Resolved]
